FAERS Safety Report 8682496 (Version 4)
Quarter: 2012Q4

REPORT INFORMATION
  Report Type: Report from Study
  Country: BR (occurrence: BR)
  Receive Date: 20120725
  Receipt Date: 20120921
  Transmission Date: 20130627
  Serious: Yes (Death, Hospitalization)
  Sender: FDA-Public Use
  Company Number: BR-BRISTOL-MYERS SQUIBB COMPANY-16778243

PATIENT
  Age: 60 Year
  Sex: Male

DRUGS (4)
  1. IPILIMUMAB [Suspect]
     Indication: MALIGNANT MELANOMA
     Route: 042
     Dates: start: 20120427, end: 20120628
  2. HYDROCHLOROTHIAZIDE [Concomitant]
     Dates: end: 20120630
  3. OMEPRAZOLE [Concomitant]
     Dates: end: 20120630
  4. METFORMINE [Concomitant]
     Dates: end: 20120630

REACTIONS (1)
  - Septic shock [Fatal]
